FAERS Safety Report 6285507-7 (Version None)
Quarter: 2009Q3

REPORT INFORMATION
  Report Type: 
  Country: None (occurrence: None)
  Receive Date: 20090727
  Receipt Date: 20090715
  Transmission Date: 20100115
  Serious: Yes (Other)
  Sender: FDA-Public Use
  Company Number: PHHY2009JP29352

PATIENT
  Age: 50 Year
  Sex: Female

DRUGS (1)
  1. NEORAL [Suspect]
     Indication: APLASTIC ANAEMIA
     Dosage: UNK
     Route: 048
     Dates: start: 20060101

REACTIONS (2)
  - LOW DENSITY LIPOPROTEIN INCREASED [None]
  - RHABDOMYOLYSIS [None]
